FAERS Safety Report 12625317 (Version 1)
Quarter: 2016Q3

REPORT INFORMATION
  Report Type: Spontaneous
  Country: GB (occurrence: GB)
  Receive Date: 20160805
  Receipt Date: 20160805
  Transmission Date: 20161109
  Serious: Yes (Other)
  Sender: FDA-Public Use
  Company Number: GB-PFIZER INC-2016369452

PATIENT
  Age: 24 Year
  Sex: Male
  Weight: 92 kg

DRUGS (1)
  1. IBUPROFEN. [Suspect]
     Active Substance: IBUPROFEN
     Dosage: UNK
     Dates: start: 20160718

REACTIONS (1)
  - Oesophageal ulcer [Unknown]

NARRATIVE: CASE EVENT DATE: 20160718
